FAERS Safety Report 6701756-5 (Version None)
Quarter: 2010Q2

REPORT INFORMATION
  Report Type: 
  Country: None (occurrence: None)
  Receive Date: 20100429
  Receipt Date: 20100422
  Transmission Date: 20101027
  Serious: Yes (Other)
  Sender: FDA-Public Use
  Company Number: PHHO2010GB05669

PATIENT
  Sex: Female
  Weight: 84.9 kg

DRUGS (5)
  1. ZOLEDRONATE T29581+SOLINJ+BM [Suspect]
     Indication: METASTASES TO BONE
     Dosage: 4 MG, UNK
     Route: 042
     Dates: start: 20050706, end: 20070912
  2. ZOLEDRONATE T29581+SOLINJ+BM [Suspect]
     Dosage: 4 MG /4 WEEKLLY
     Route: 042
     Dates: start: 20071115, end: 20090819
  3. ZOLEDRONATE T29581+SOLINJ+BM [Suspect]
     Dosage: 3.5 MG/4 WEEKLY
     Route: 042
     Dates: start: 20091021, end: 20100317
  4. VITAMIN D [Concomitant]
  5. CALCIUM [Concomitant]

REACTIONS (3)
  - ERYTHEMA [None]
  - OSTEONECROSIS [None]
  - SWELLING [None]
